FAERS Safety Report 10066720 (Version 1)
Quarter: 2014Q2

REPORT INFORMATION
  Report Type: Report from Study
  Country: US (occurrence: US)
  Receive Date: 20140408
  Receipt Date: 20140408
  Transmission Date: 20141212
  Serious: Yes (Other)
  Sender: FDA-Public Use
  Company Number: US-EXELIXIS-XL18414004162

PATIENT
  Age: 62 Year
  Sex: Male

DRUGS (6)
  1. XL184 [Suspect]
     Indication: NON-SMALL CELL LUNG CANCER
     Dosage: 40 MG, QD
     Route: 048
     Dates: start: 20130904, end: 20130921
  2. XL184 [Suspect]
     Dosage: UNK
     Dates: end: 20130930
  3. XL184 [Suspect]
     Dosage: 20 MG, QD
     Route: 048
     Dates: start: 20131014, end: 20131101
  4. ERLOTINIB [Concomitant]
     Indication: NON-SMALL CELL LUNG CANCER
     Dosage: 150 MG, QD
     Route: 048
     Dates: start: 20130904, end: 20130921
  5. ERLOTINIB [Concomitant]
     Dosage: UNK
     Dates: end: 20130930
  6. ERLOTINIB [Concomitant]
     Dosage: 100 MG, QD
     Route: 048
     Dates: start: 20131014, end: 20131101

REACTIONS (2)
  - Amylase increased [Recovered/Resolved]
  - Rash maculo-papular [Recovered/Resolved]
